FAERS Safety Report 15670095 (Version 2)
Quarter: 2018Q4

REPORT INFORMATION
  Report Type: Report from Study
  Country: DE (occurrence: DE)
  Receive Date: 20181129
  Receipt Date: 20181206
  Transmission Date: 20190205
  Serious: Yes (Death, Hospitalization, Other)
  Sender: FDA-Public Use
  Company Number: DE-BEH-2018097127

PATIENT
  Age: 72 Year
  Sex: Male
  Weight: 57 kg

DRUGS (12)
  1. IMMUNOGLOBULIN                     /07494701/ [Suspect]
     Active Substance: IMMUNE GLOBULIN NOS
     Indication: CHRONIC LYMPHOCYTIC LEUKAEMIA
  2. PRIVIGEN [Suspect]
     Active Substance: HUMAN IMMUNOGLOBULIN G
     Indication: SECONDARY IMMUNODEFICIENCY
     Dosage: 20 G, TOT
     Route: 042
     Dates: start: 20180129, end: 20180129
  3. PRIVIGEN [Suspect]
     Active Substance: HUMAN IMMUNOGLOBULIN G
     Indication: INFECTION
     Dosage: 20 G, TOT
     Route: 042
     Dates: start: 20180403, end: 20180403
  4. MATUZUMAB [Concomitant]
     Active Substance: MATUZUMAB
  5. SALBUTAMOL [Concomitant]
     Active Substance: ALBUTEROL
  6. HYDROMORPHONE [Concomitant]
     Active Substance: HYDROMORPHONE
  7. IPRATROPIUM BROMIDE. [Concomitant]
     Active Substance: IPRATROPIUM BROMIDE
  8. CHLORAMBUCIL [Concomitant]
     Active Substance: CHLORAMBUCIL
  9. PANTOPRAZOLE [Concomitant]
     Active Substance: PANTOPRAZOLE
  10. KODEIN [Concomitant]
     Active Substance: CODEINE PHOSPHATE
  11. PRIVIGEN [Suspect]
     Active Substance: HUMAN IMMUNOGLOBULIN G
     Indication: CHRONIC LYMPHOCYTIC LEUKAEMIA
     Dosage: 20 G, TOT
     Route: 042
     Dates: start: 20180108, end: 20180108
  12. IMMUNOGLOBULIN                     /07494701/ [Suspect]
     Active Substance: IMMUNE GLOBULIN NOS
     Indication: SECONDARY IMMUNODEFICIENCY
     Dosage: 10 G, UNK
     Route: 042
     Dates: start: 20180306

REACTIONS (5)
  - Pneumonia [Recovered/Resolved]
  - Marasmus [Fatal]
  - Hypophagia [Unknown]
  - Pneumonia [Fatal]
  - Dehydration [Unknown]

NARRATIVE: CASE EVENT DATE: 20180225
